FAERS Safety Report 13771190 (Version 1)
Quarter: 2017Q3

REPORT INFORMATION
  Report Type: Spontaneous
  Country: US (occurrence: US)
  Receive Date: 20170720
  Receipt Date: 20170720
  Transmission Date: 20171127
  Serious: Yes (Disabling)
  Sender: FDA-Public Use
  Company Number: None

PATIENT
  Age: 74 Year
  Sex: Female
  Weight: 58.5 kg

DRUGS (12)
  1. VITAMIN D3 [Concomitant]
     Active Substance: CHOLECALCIFEROL
  2. CO-Q10 [Concomitant]
  3. MELATONIN [Concomitant]
     Active Substance: MELATONIN
  4. CALCIUM [Concomitant]
     Active Substance: CALCIUM
  5. ROSUVASTATIN. [Suspect]
     Active Substance: ROSUVASTATIN
     Indication: BLOOD CHOLESTEROL INCREASED
     Dosage: ?          OTHER STRENGTH:MG;QUANTITY:1 TABLET(S);?
     Route: 048
     Dates: start: 20160701, end: 20170715
  6. CARVEDILOL. [Concomitant]
     Active Substance: CARVEDILOL
  7. EYE VITAMIN [Concomitant]
  8. OMEPRAZOLE. [Concomitant]
     Active Substance: OMEPRAZOLE
  9. FLUTICASONE. [Concomitant]
     Active Substance: FLUTICASONE
  10. BABY ASPIRIN [Concomitant]
     Active Substance: ASPIRIN
  11. PROBIOTIC [Concomitant]
     Active Substance: PROBIOTICS NOS
  12. FLOVENT [Concomitant]
     Active Substance: FLUTICASONE PROPIONATE

REACTIONS (5)
  - Glucose tolerance impaired [None]
  - Diabetes mellitus [None]
  - Abdominal distension [None]
  - Dry mouth [None]
  - Blood glucose decreased [None]

NARRATIVE: CASE EVENT DATE: 20160701
